FAERS Safety Report 19063353 (Version 1)
Quarter: 2021Q1

REPORT INFORMATION
  Report Type: Spontaneous
  Country: IR (occurrence: IR)
  Receive Date: 20210326
  Receipt Date: 20210326
  Transmission Date: 20210420
  Serious: Yes (Death)
  Sender: FDA-Public Use
  Company Number: IR-PFIZER INC-2021310290

PATIENT
  Age: 16 Year
  Sex: Male
  Weight: 80 kg

DRUGS (10)
  1. HYDROXYCHLOROQUINE [Suspect]
     Active Substance: HYDROXYCHLOROQUINE
     Indication: COVID-19
     Dosage: UNK
     Dates: start: 202003
  2. VANCOMYCIN [Suspect]
     Active Substance: VANCOMYCIN
     Indication: COVID-19
     Dosage: UNK
     Dates: start: 202003
  3. FOLIC ACID. [Concomitant]
     Active Substance: FOLIC ACID
     Dosage: UNK
  4. RITONAVIR. [Suspect]
     Active Substance: RITONAVIR
     Indication: COVID-19
     Dosage: UNK
     Dates: start: 202003
  5. LOPINAVIR [Suspect]
     Active Substance: LOPINAVIR
     Indication: COVID-19
     Dosage: UNK
     Dates: start: 202003
  6. HYDROCORTISONE. [Concomitant]
     Active Substance: HYDROCORTISONE
     Dosage: STRESS DOSE
     Dates: start: 202003
  7. MYCOPHENOLATE [Concomitant]
     Active Substance: MYCOPHENOLIC ACID
     Dosage: 360 MG, 2X/DAY
  8. ASPIRIN [ACETYLSALICYLIC ACID] [Concomitant]
     Active Substance: ASPIRIN
     Dosage: 80 MG, DAILY
  9. MEROPENEM. [Suspect]
     Active Substance: MEROPENEM
     Indication: COVID-19
     Dosage: UNK
     Dates: start: 202003
  10. ALLOPURINOL. [Concomitant]
     Active Substance: ALLOPURINOL
     Dosage: 100 MG, DAILY

REACTIONS (2)
  - Off label use [Fatal]
  - Drug ineffective for unapproved indication [Fatal]

NARRATIVE: CASE EVENT DATE: 2020
